FAERS Safety Report 6653450-7 (Version None)
Quarter: 2010Q1

REPORT INFORMATION
  Report Type: 
  Country: None (occurrence: None)
  Receive Date: 20100326
  Receipt Date: 20100322
  Transmission Date: 20100710
  Serious: Yes (Other)
  Sender: FDA-Public Use
  Company Number: PHEH2006US03723

PATIENT
  Sex: Female

DRUGS (29)
  1. ZOMETA [Suspect]
     Indication: BREAST CANCER METASTATIC
     Dosage: 4 MG, QMO
     Route: 042
     Dates: start: 20020617, end: 20050831
  2. FEMARA [Concomitant]
     Dosage: 2.5 MG, DAILY
     Dates: start: 20020218
  3. CYTOXAN [Concomitant]
     Dosage: 600 MG/M2, X 6 CYCLES
  4. CYTOXAN [Concomitant]
     Dosage: 600 MG/M2, X 6 CYCLES
  5. LIPITOR [Concomitant]
  6. LISINOPRIL [Concomitant]
  7. FUROSEMIDE [Concomitant]
  8. K-DUR [Concomitant]
  9. TOPROL-XL [Concomitant]
  10. VICODIN [Concomitant]
  11. PENICILLIN VK [Concomitant]
  12. XELODA [Concomitant]
  13. ZEBETA [Concomitant]
  14. WARFARIN SODIUM [Concomitant]
  15. NORCO [Concomitant]
  16. ASPIRIN [Concomitant]
  17. MULTIVITAMIN ^LAPPE^ [Concomitant]
  18. FASLODEX [Concomitant]
  19. AUGMENTIN                               /SCH/ [Concomitant]
  20. POTASSIUM CHLORIDE [Concomitant]
  21. ADRIAMYCIN PFS [Concomitant]
  22. FLUOROURACIL [Concomitant]
  23. TAXOTERE [Concomitant]
  24. ESTRADIOL [Concomitant]
  25. TAMOXIFEN CITRATE [Concomitant]
  26. AROMASIN [Concomitant]
  27. COUMADIN [Concomitant]
  28. PERIDEX [Concomitant]
  29. TETRACYCLINE [Concomitant]

REACTIONS (32)
  - ACTINOMYCOSIS [None]
  - ALVEOLOPLASTY [None]
  - BONE DISORDER [None]
  - BONE FRAGMENTATION [None]
  - BONE OPERATION [None]
  - CARDIAC FAILURE [None]
  - CENTRAL VENOUS CATHETERISATION [None]
  - DEFORMITY [None]
  - DENTAL CARIES [None]
  - DENTAL OPERATION [None]
  - DIARRHOEA [None]
  - DYSGEUSIA [None]
  - EATING DISORDER [None]
  - ERYTHEMA [None]
  - FISTULA [None]
  - INFECTION [None]
  - INFLUENZA [None]
  - INJURY [None]
  - LOCAL SWELLING [None]
  - MENORRHAGIA [None]
  - METASTASES TO BONE [None]
  - MYOCARDIAL INFARCTION [None]
  - OSTEOMYELITIS [None]
  - OSTEOMYELITIS CHRONIC [None]
  - OSTEONECROSIS [None]
  - PAIN [None]
  - PHYSICAL DISABILITY [None]
  - POST PROCEDURAL DISCHARGE [None]
  - PURULENT DISCHARGE [None]
  - SOFT TISSUE INFECTION [None]
  - STAPHYLOCOCCAL INFECTION [None]
  - TOOTH EXTRACTION [None]
